FAERS Safety Report 25182839 (Version 3)
Quarter: 2025Q3

REPORT INFORMATION
  Report Type: Report from Study
  Country: US (occurrence: US)
  Receive Date: 20250410
  Receipt Date: 20250911
  Transmission Date: 20251020
  Serious: Yes (Hospitalization)
  Sender: BOEHRINGER INGELHEIM
  Company Number: US-BoehringerIngelheim-2025-BI-012521

PATIENT
  Age: 66 Year
  Sex: Female

DRUGS (3)
  1. OFEV [Suspect]
     Active Substance: NINTEDANIB
     Indication: Interstitial lung disease
     Dates: start: 20250226
  2. OFEV [Suspect]
     Active Substance: NINTEDANIB
     Indication: Idiopathic pulmonary fibrosis
  3. OXYGEN [Concomitant]
     Active Substance: OXYGEN
     Indication: Product used for unknown indication

REACTIONS (18)
  - Dyspnoea [Recovering/Resolving]
  - Productive cough [Recovering/Resolving]
  - Fatigue [Not Recovered/Not Resolved]
  - Blood pressure systolic increased [Not Recovered/Not Resolved]
  - Nausea [Recovered/Resolved]
  - Pain [Not Recovered/Not Resolved]
  - Alopecia [Not Recovered/Not Resolved]
  - Stress urinary incontinence [Not Recovered/Not Resolved]
  - Chondropathy [Not Recovered/Not Resolved]
  - Decreased appetite [Not Recovered/Not Resolved]
  - Exercise tolerance decreased [Not Recovered/Not Resolved]
  - Nasal dryness [Not Recovered/Not Resolved]
  - Rhinalgia [Not Recovered/Not Resolved]
  - Mobility decreased [Not Recovered/Not Resolved]
  - Hypertension [Not Recovered/Not Resolved]
  - Headache [Not Recovered/Not Resolved]
  - Cough [Not Recovered/Not Resolved]
  - Physical deconditioning [Not Recovered/Not Resolved]

NARRATIVE: CASE EVENT DATE: 20250101
